FAERS Safety Report 11639977 (Version 1)
Quarter: 2015Q4

REPORT INFORMATION
  Report Type: Spontaneous
  Country: US (occurrence: None)
  Receive Date: 20151016
  Receipt Date: 20151016
  Transmission Date: 20160304
  Serious: Yes (Hospitalization, Disabling)
  Sender: FDA-Public Use
  Company Number: None

PATIENT
  Age: 29 Year
  Sex: Male

DRUGS (1)
  1. PROPECIA [Suspect]
     Active Substance: FINASTERIDE
     Indication: ANDROGENETIC ALOPECIA
     Route: 048
     Dates: start: 20080601, end: 20121013

REACTIONS (6)
  - Hypogonadism male [None]
  - Hypercorticoidism [None]
  - Lethargy [None]
  - Loss of libido [None]
  - Dizziness [None]
  - Hyperprolactinaemia [None]

NARRATIVE: CASE EVENT DATE: 20150902
